FAERS Safety Report 4686141-2 (Version None)
Quarter: 2005Q2

REPORT INFORMATION
  Report Type: 
  Country: None (occurrence: None)
  Receive Date: 20050609
  Receipt Date: 20050419
  Transmission Date: 20051028
  Serious: Yes (Hospitalization)
  Sender: FDA-Public Use
  Company Number: JP-MERCK-0504USA04647

PATIENT
  Age: 70 Year
  Sex: Male

DRUGS (13)
  1. PEPCID RPD [Suspect]
     Indication: GASTRITIS
     Route: 048
     Dates: start: 20040514, end: 20040605
  2. CORTICOSTEROIDS (UNSPECIFIED) [Concomitant]
     Route: 065
  3. PREDNISOLONE [Concomitant]
     Route: 048
     Dates: start: 20040401, end: 20040828
  4. DIMETHICONE [Concomitant]
     Route: 048
     Dates: start: 20040401, end: 20040605
  5. ETHYL ICOSAPENTATE [Concomitant]
     Route: 048
     Dates: start: 20040401, end: 20040605
  6. IBUDILAST [Concomitant]
     Route: 048
     Dates: start: 20040401, end: 20040605
  7. VITAMIN E NICOTINATE [Concomitant]
     Route: 048
     Dates: start: 20040401, end: 20040605
  8. PRAVASTATIN SODIUM [Concomitant]
     Route: 048
     Dates: start: 20040401, end: 20040605
  9. ALFACALCIDOL [Concomitant]
     Route: 048
     Dates: start: 20040401, end: 20040605
  10. ASPIRIN [Concomitant]
     Route: 048
     Dates: start: 20040401, end: 20040603
  11. TICLOPIDINE HYDROCHLORIDE [Concomitant]
     Route: 048
     Dates: start: 20040401, end: 20040602
  12. GLYBURIDE [Concomitant]
     Route: 048
     Dates: start: 20040401, end: 20040605
  13. ACARBOSE [Concomitant]
     Route: 048
     Dates: start: 20040401, end: 20040605

REACTIONS (1)
  - LIVER DISORDER [None]
